FAERS Safety Report 5036666-5 (Version None)
Quarter: 2006Q2

REPORT INFORMATION
  Report Type: 
  Country: None (occurrence: None)
  Receive Date: 20060628
  Receipt Date: 20060619
  Transmission Date: 20061013
  Serious: Yes (Hospitalization, Other)
  Sender: FDA-Public Use
  Company Number: FRWYE743219JUN06

PATIENT
  Age: 53 Year
  Sex: Male

DRUGS (1)
  1. ENBREL [Suspect]
     Indication: ANKYLOSING SPONDYLITIS
     Dosage: 2 DOSES TOTAL WEEKLY
     Route: 058
     Dates: start: 20040617, end: 20060225

REACTIONS (8)
  - DIARRHOEA [None]
  - DRUG EFFECT DECREASED [None]
  - LOGORRHOEA [None]
  - NIGHT SWEATS [None]
  - PRURITUS [None]
  - SCRATCH [None]
  - THYROXINE INCREASED [None]
  - WEIGHT DECREASED [None]
